FAERS Safety Report 8564869-1 (Version None)
Quarter: 2012Q3

REPORT INFORMATION
  Report Type: 
  Country: None (occurrence: None)
  Receive Date: 20120803
  Receipt Date: 20120610
  Transmission Date: 20120928
  Serious: No
  Sender: FDA-Public Use
  Company Number: US-GLAXOSMITHKLINE-A0981847A

PATIENT
  Sex: Male

DRUGS (1)
  1. HORIZANT [Suspect]
     Indication: PRODUCT USED FOR UNKNOWN INDICATION
     Route: 048

REACTIONS (5)
  - MOBILITY DECREASED [None]
  - DIZZINESS [None]
  - PRODUCT QUALITY ISSUE [None]
  - SOMNOLENCE [None]
  - DYSSTASIA [None]
